FAERS Safety Report 4836400-5 (Version None)
Quarter: 2005Q4

REPORT INFORMATION
  Report Type: 
  Country: None (occurrence: None)
  Receive Date: 20051118
  Receipt Date: 20051108
  Transmission Date: 20060501
  Serious: Yes (Hospitalization, Other)
  Sender: FDA-Public Use
  Company Number: HQWYE399612SEP05

PATIENT
  Age: 42 Year
  Sex: Male

DRUGS (9)
  1. RAPAMUNE [Suspect]
     Indication: PROPHYLAXIS AGAINST TRANSPLANT REJECTION
     Dosage: 2 MG 1X PER 1 DAY
     Route: 048
     Dates: start: 20050101, end: 20050808
  2. CLONIDINE [Concomitant]
  3. CALCIUM CARBONATE (CALCIUM CARBONATE) [Concomitant]
  4. ROCALTROL [Concomitant]
  5. SEPTRA DS [Concomitant]
  6. VERAPAMIL [Concomitant]
  7. FLOMAX [Concomitant]
  8. CELLCEPT [Concomitant]
  9. TACROLIMUS (TACROLIMUS) [Concomitant]

REACTIONS (2)
  - PERICARDIAL EFFUSION [None]
  - PROTEINURIA [None]
